FAERS Safety Report 10077106 (Version 1)
Quarter: 2014Q2

REPORT INFORMATION
  Report Type: Spontaneous
  Country: FR (occurrence: None)
  Receive Date: 20140410
  Receipt Date: 20140410
  Transmission Date: 20141212
  Serious: Yes (Hospitalization)
  Sender: FDA-Public Use
  Company Number: AXC-2014-000239

PATIENT
  Age: 45 Year
  Sex: Female

DRUGS (2)
  1. PYLERA [Suspect]
     Route: 048
     Dates: start: 20140224, end: 2014
  2. INEXIUM [Concomitant]

REACTIONS (1)
  - Pancreatitis acute [None]
